FAERS Safety Report 8387065-X (Version None)
Quarter: 2012Q2

REPORT INFORMATION
  Report Type: 
  Country: None (occurrence: None)
  Receive Date: 20120525
  Receipt Date: 20120523
  Transmission Date: 20120825
  Serious: Yes (Death, Other)
  Sender: FDA-Public Use
  Company Number: AT-ACTELION-A-CH2012-65296

PATIENT
  Age: 74 Year
  Sex: Female

DRUGS (2)
  1. TRACLEER [Suspect]
     Indication: SYSTEMIC SCLEROSIS
     Dosage: 125 MG, QD
     Route: 048
  2. GEMZAR [Concomitant]

REACTIONS (4)
  - LARYNGEAL CANCER [None]
  - PARANEOPLASTIC SYNDROME [None]
  - TONSIL CANCER [None]
  - RENAL FAILURE ACUTE [None]
